FAERS Safety Report 6212612-3 (Version None)
Quarter: 2009Q2

REPORT INFORMATION
  Report Type: 
  Country: None (occurrence: None)
  Receive Date: 20090529
  Receipt Date: 20090518
  Transmission Date: 20091009
  Serious: Yes (Life-Threatening, Other)
  Sender: FDA-Public Use
  Company Number: 1000006403

PATIENT
  Age: 46 Year
  Sex: Male

DRUGS (2)
  1. NEBIVOLOL HCL [Suspect]
     Indication: HYPERTENSION
     Dosage: 5 MG (5 MG, 1 IN 1 D), ORAL
     Route: 048
     Dates: start: 20090323, end: 20090424
  2. ZOLPIDEM [Concomitant]

REACTIONS (6)
  - ABDOMINAL DISTENSION [None]
  - DYSPNOEA [None]
  - FLUID OVERLOAD [None]
  - PITTING OEDEMA [None]
  - RALES [None]
  - WEIGHT INCREASED [None]
